FAERS Safety Report 7326602-0 (Version None)
Quarter: 2011Q1

REPORT INFORMATION
  Report Type: 
  Country: None (occurrence: None)
  Receive Date: 20110302
  Receipt Date: 20100921
  Transmission Date: 20110831
  Serious: Yes (Hospitalization)
  Sender: FDA-Public Use
  Company Number: US-BAYER-201030877NA

PATIENT
  Sex: Female
  Weight: 58.182 kg

DRUGS (19)
  1. YASMIN [Suspect]
     Indication: PRODUCT USED FOR UNKNOWN INDICATION
     Dates: start: 20070101
  2. UNCODEABLE ^INVESTIGATIONAL DRUG^ [Concomitant]
  3. DARVOCET [Concomitant]
     Indication: PAIN
     Dosage: UNK
     Dates: start: 20050101, end: 20090101
  4. NEBIVOLOL [Concomitant]
  5. MAXALT [Concomitant]
  6. EFFEXOR XR [Concomitant]
  7. PANTOPRATE [Concomitant]
  8. SULINDAC [Concomitant]
     Indication: INFLAMMATION
     Dosage: UNK
     Dates: start: 20090101
  9. YAZ [Suspect]
     Indication: CONTRACEPTION
     Dates: start: 20070607, end: 20091207
  10. BENICAR [Concomitant]
     Dates: start: 20080101
  11. WELLBUTRIN SR [Concomitant]
  12. ALPRAZOLAM [Concomitant]
  13. BUDEPRION [Concomitant]
     Indication: DEPRESSION
     Dosage: UNK
     Dates: start: 20030101
  14. PROPOXYPHENE HYDROCHLORIDE [Concomitant]
  15. UNCODEABLE ^INVESTIGATIONAL DRUG^ [Concomitant]
  16. OCELLA [Suspect]
     Indication: CONTRACEPTION
     Dates: start: 20070607, end: 20091207
  17. VALTREX [Concomitant]
  18. UNCODEABLE ^UNCLASSIFIABLE^ [Concomitant]
  19. VENLAFAXINE [Concomitant]

REACTIONS (8)
  - MYOCARDIAL INFARCTION [None]
  - CHOLECYSTITIS CHRONIC [None]
  - BILIARY DYSKINESIA [None]
  - DYSPNOEA [None]
  - CHEST DISCOMFORT [None]
  - MENTAL DISORDER [None]
  - PAIN IN EXTREMITY [None]
  - NAUSEA [None]
